FAERS Safety Report 6058289-1 (Version None)
Quarter: 2009Q1

REPORT INFORMATION
  Report Type: 
  Country: None (occurrence: None)
  Receive Date: 20090130
  Receipt Date: 20090120
  Transmission Date: 20090719
  Serious: Yes (Other)
  Sender: FDA-Public Use
  Company Number: US-BAYER-200911771GPV

PATIENT
  Age: 66 Year
  Sex: Male

DRUGS (3)
  1. GADOPENTETATE DIMEGLUMINE [Suspect]
     Indication: NUCLEAR MAGNETIC RESONANCE IMAGING
     Route: 042
     Dates: start: 20010101
  2. GADOPENTETATE DIMEGLUMINE [Suspect]
     Route: 042
     Dates: start: 20060101
  3. GADOPENTETATE DIMEGLUMINE [Suspect]
     Route: 042
     Dates: start: 20070101

REACTIONS (1)
  - NEPHROGENIC SYSTEMIC FIBROSIS [None]
